FAERS Safety Report 17215601 (Version 1)
Quarter: 2019Q4

REPORT INFORMATION
  Report Type: Spontaneous
  Country: US (occurrence: US)
  Receive Date: 20191230
  Receipt Date: 20191230
  Transmission Date: 20200122
  Serious: No
  Sender: FDA-Public Use
  Company Number: US-BAUSCH-BL-2019-064777

PATIENT
  Age: 87 Year
  Sex: Female
  Weight: 53.57 kg

DRUGS (2)
  1. LEVOTHYROXINE. [Concomitant]
     Active Substance: LEVOTHYROXINE
     Indication: PRODUCT USED FOR UNKNOWN INDICATION
     Route: 048
  2. BEPREVE [Suspect]
     Active Substance: BEPOTASTINE BESILATE
     Indication: EYE PRURITUS
     Dosage: IN EVENING
     Route: 047
     Dates: start: 20191208, end: 20191209

REACTIONS (4)
  - Vision blurred [Recovered/Resolved]
  - Dry eye [Recovered/Resolved]
  - Abnormal sensation in eye [Recovered/Resolved]
  - Inappropriate schedule of product administration [Unknown]

NARRATIVE: CASE EVENT DATE: 20191208
